FAERS Safety Report 5626819-7 (Version None)
Quarter: 2008Q1

REPORT INFORMATION
  Report Type: 
  Country: None (occurrence: None)
  Receive Date: 20080214
  Receipt Date: 20080202
  Transmission Date: 20080703
  Serious: Yes (Other)
  Sender: FDA-Public Use
  Company Number: US-PFIZER INC-2008012903

PATIENT
  Sex: Female
  Weight: 80.909 kg

DRUGS (12)
  1. CHANTIX [Suspect]
     Indication: SMOKING CESSATION THERAPY
     Dates: start: 20071001, end: 20080130
  2. PRILOSEC [Concomitant]
  3. DETROL LA [Concomitant]
  4. LISINOPRIL [Concomitant]
  5. PROZAC [Concomitant]
  6. KLONOPIN [Concomitant]
  7. ELAVIL [Concomitant]
  8. CRESTOR [Concomitant]
  9. METFORMIN HCL [Concomitant]
  10. VICODIN [Concomitant]
     Indication: PAIN
  11. FLEXERIL [Concomitant]
     Indication: PAIN
  12. ALL OTHER THERAPEUTIC PRODUCTS [Concomitant]
     Indication: INTESTINAL FUNCTIONAL DISORDER

REACTIONS (1)
  - VENTRICULAR TACHYCARDIA [None]
